FAERS Safety Report 7504211-8 (Version None)
Quarter: 2011Q2

REPORT INFORMATION
  Report Type: 
  Country: None (occurrence: None)
  Receive Date: 20110525
  Receipt Date: 20110523
  Transmission Date: 20111010
  Serious: Yes (Death, Hospitalization, Other)
  Sender: FDA-Public Use
  Company Number: JP-PFIZER INC-2011111579

PATIENT
  Age: 75 Year
  Sex: Male

DRUGS (4)
  1. METHYLPREDNISOLONE ACETATE [Suspect]
     Indication: ANTI-NEUTROPHIL CYTOPLASMIC ANTIBODY POSITIVE VASCULITIS
  2. PREDNISOLONE [Suspect]
     Indication: INTERSTITIAL LUNG DISEASE
     Dosage: 40 MG/DAY, DECREASED BY 5 MG/DAY
  3. METHYLPREDNISOLONE ACETATE [Suspect]
     Indication: INTERSTITIAL LUNG DISEASE
     Dosage: 1 G/DAY FOR 3 DAYS
  4. PREDNISOLONE [Suspect]
     Indication: ANTI-NEUTROPHIL CYTOPLASMIC ANTIBODY POSITIVE VASCULITIS
     Dosage: 20 MG/DAY

REACTIONS (5)
  - SEPSIS [None]
  - LUNG DISORDER [None]
  - RESPIRATORY FAILURE [None]
  - LOWER RESPIRATORY TRACT INFECTION BACTERIAL [None]
  - ACUTE RESPIRATORY DISTRESS SYNDROME [None]
